FAERS Safety Report 9495186 (Version 1)
Quarter: 2013Q3

REPORT INFORMATION
  Report Type: Report from Study
  Country: CO (occurrence: CO)
  Receive Date: 20130903
  Receipt Date: 20130903
  Transmission Date: 20140515
  Serious: Yes (Death)
  Sender: FDA-Public Use
  Company Number: CO-SANOFI-AVENTIS-2013SA085709

PATIENT
  Age: 85 Year
  Sex: Male

DRUGS (2)
  1. LANTUS [Suspect]
     Indication: DIABETES MELLITUS
     Dosage: DOSE:12 UNIT(S)
     Route: 058
     Dates: start: 20130714, end: 20130819
  2. JANUMET [Concomitant]
     Indication: DIABETES MELLITUS
     Dosage: 50/500
     Route: 048
     Dates: end: 20130819

REACTIONS (1)
  - Pancreatic neoplasm [Fatal]
